FAERS Safety Report 9476292 (Version 3)
Quarter: 2013Q3

REPORT INFORMATION
  Report Type: Spontaneous
  Country: TR (occurrence: TR)
  Receive Date: 20130826
  Receipt Date: 20130927
  Transmission Date: 20140515
  Serious: Yes (Death, Hospitalization, Other)
  Sender: FDA-Public Use
  Company Number: TR-JNJFOC-20130808861

PATIENT
  Sex: 0

DRUGS (8)
  1. DOXORUBICIN [Suspect]
     Indication: HEPATOCELLULAR CARCINOMA
     Dosage: 50-100 MG
     Route: 013
  2. CISPLATIN [Suspect]
     Indication: HEPATOCELLULAR CARCINOMA
     Dosage: 50-100 MG IN A MIXTURE OF 5-10 MG LIPIODOL
     Route: 013
  3. MITOMYCIN [Suspect]
     Indication: HEPATOCELLULAR CARCINOMA
     Dosage: 5-10 MG IN A MIXTURE OF 5-10 MG LIPIODOL
     Route: 013
  4. POLYVINYL ALCOHOL [Suspect]
     Indication: HEPATOCELLULAR CARCINOMA
     Dosage: EMBOLIC MATERIALS
     Route: 065
  5. LIPIODOL [Suspect]
     Indication: HEPATOCELLULAR CARCINOMA
     Dosage: 5-10 MG
     Route: 065
  6. LIDOCAINE [Concomitant]
     Indication: LOCAL ANAESTHESIA
     Route: 065
  7. MIDAZOLAM [Concomitant]
     Indication: LOCAL ANAESTHESIA
     Route: 042
  8. FENTANYL CITRATE [Concomitant]
     Indication: LOCAL ANAESTHESIA
     Route: 042

REACTIONS (6)
  - Disease progression [Fatal]
  - Disease progression [Unknown]
  - Hepatotoxicity [Unknown]
  - Pancytopenia [Unknown]
  - Incorrect route of drug administration [Unknown]
  - Off label use [Unknown]
